FAERS Safety Report 9064846 (Version 1)
Quarter: 2013Q1

REPORT INFORMATION
  Report Type: Spontaneous
  Country: US (occurrence: US)
  Receive Date: 20130213
  Receipt Date: 20130213
  Transmission Date: 20140127
  Serious: Yes (Other)
  Sender: FDA-Public Use
  Company Number: US-ASTRAZENECA-2011SE51232

PATIENT
  Age: 75 Year
  Sex: Male

DRUGS (2)
  1. CASODEX [Suspect]
     Route: 048
  2. TAMOXIFEN [Suspect]
     Route: 048

REACTIONS (4)
  - Bladder cancer [Unknown]
  - Breast cancer male [Unknown]
  - Herpes zoster [Unknown]
  - Arthralgia [Unknown]
